FAERS Safety Report 5372552-9 (Version None)
Quarter: 2007Q2

REPORT INFORMATION
  Report Type: 
  Country: None (occurrence: None)
  Receive Date: 20070626
  Receipt Date: 20070618
  Transmission Date: 20071010
  Serious: Yes (Hospitalization, Other)
  Sender: FDA-Public Use
  Company Number: 430010N07JPN

PATIENT
  Age: 45 Year
  Sex: Male

DRUGS (25)
  1. NOVANTRONE [Suspect]
     Dosage: NOT REPORTED, NOT REPORTED, INTRAVENOUS (NOT OTHERWISE SPECIFIED)
     Route: 042
     Dates: start: 20061011, end: 20061015
  2. MYLOTARG [Suspect]
     Dosage: 9 MG/M2, 1 IN 1 DAYS, INTRAVENOUS (NOT OTHERWISE SPECIFIED)
     Route: 042
     Dates: start: 20061027, end: 20061027
  3. MYLOTARG [Suspect]
     Dosage: 9 MG/M2, 1 IN 1 DAYS, INTRAVENOUS (NOT OTHERWISE SPECIFIED)
     Route: 042
     Dates: start: 20061110, end: 20061110
  4. CYTARABINE [Suspect]
     Dosage: NOT REPORTED, NOT REPORTED, INTRAVENOUS (NOT OTHERWISE SPECIFIED)
     Route: 042
     Dates: start: 20061011, end: 20061015
  5. ETOPOSIDE [Suspect]
     Dosage: NOT REPORTED, NOT REPORTED, INTRAVENOUS (NOT OTHERWISE SPECIFIED)
     Route: 042
     Dates: start: 20061011, end: 20061015
  6. VANCOMYCIN /00314401/) [Concomitant]
  7. HEPARIN SODIUM [Concomitant]
  8. SODIUM BICARBONATE [Concomitant]
  9. INSULIN HUMAN [Concomitant]
  10. CYCLOSPORINE [Concomitant]
  11. ENTERONON R [Concomitant]
  12. FAMOTIDINE [Concomitant]
  13. ITRACONAZOLE [Concomitant]
  14. AMPHOTERICIN B [Concomitant]
  15. LINEZOLID [Concomitant]
  16. MICAFUNGIN SODIUM [Concomitant]
  17. CEFTAZIDIME [Concomitant]
  18. VORICONAZOLE [Concomitant]
  19. CEFEPIME HYDROCHLORIDE [Concomitant]
  20. AZTREONAM [Concomitant]
  21. PRIMAXIN [Concomitant]
  22. ARBEKACIN [Concomitant]
  23. URSODIOL [Concomitant]
  24. CIPROFLOXACIN HCL [Concomitant]
  25. ZOLPIDEM TARTRATE [Concomitant]

REACTIONS (4)
  - CHILLS [None]
  - FEBRILE NEUTROPENIA [None]
  - PANCYTOPENIA [None]
  - PSEUDOMEMBRANOUS COLITIS [None]
